FAERS Safety Report 8564934 (Version 3)
Quarter: 2015Q1

REPORT INFORMATION
  Report Type: Spontaneous
  Country: US (occurrence: US)
  Receive Date: 20120516
  Receipt Date: 20150108
  Transmission Date: 20150721
  Serious: Yes (Other)
  Sender: FDA-Public Use
  Company Number: US-PFIZER INC-2012115610

PATIENT
  Age: 57 Year
  Sex: Male

DRUGS (2)
  1. BENZYLPENICILLIN POTASSIUM [Suspect]
     Active Substance: PENICILLIN G POTASSIUM
     Indication: NEUROSYPHILIS
     Dosage: 3 MILLION UNITS Q4HOUR
     Route: 042
  2. BENZYLPENICILLIN POTASSIUM [Suspect]
     Active Substance: PENICILLIN G POTASSIUM
     Dosage: 2 MILLION UNITS Q4 HOUR
     Route: 042

REACTIONS (2)
  - Ischaemic stroke [Unknown]
  - Jarisch-Herxheimer reaction [Unknown]
